FAERS Safety Report 6722528-1 (Version None)
Quarter: 2010Q2

REPORT INFORMATION
  Report Type: 
  Country: None (occurrence: None)
  Receive Date: 20100512
  Receipt Date: 20100429
  Transmission Date: 20101027
  Serious: Yes (Hospitalization, Other)
  Sender: FDA-Public Use
  Company Number: US-ROCHE-654977

PATIENT
  Sex: Female
  Weight: 104.3 kg

DRUGS (7)
  1. PEGINTERFERON ALFA-2A [Suspect]
     Indication: HEPATITIS C
     Dosage: FORM: PRE-FILLED SYRINGE.
     Route: 058
     Dates: start: 20090409
  2. PEGINTERFERON ALFA-2A [Suspect]
     Route: 058
     Dates: end: 20100401
  3. RIBAVIRIN [Suspect]
     Indication: HEPATITIS C
     Dosage: DIVIDED DOSES
     Route: 048
     Dates: start: 20090409
  4. RIBAVIRIN [Suspect]
     Route: 048
     Dates: start: 20091201, end: 20100401
  5. LEXAPRO [Concomitant]
  6. RANITIDINE [Concomitant]
  7. FERROUS SULFATE TAB [Concomitant]

REACTIONS (10)
  - ALOPECIA [None]
  - ASTHMA [None]
  - BLOOD GLUCOSE FLUCTUATION [None]
  - EMPHYSEMA [None]
  - PLATELET COUNT DECREASED [None]
  - RED BLOOD CELL COUNT DECREASED [None]
  - RETINAL EXUDATES [None]
  - STOMATITIS [None]
  - VISUAL IMPAIRMENT [None]
  - VOMITING [None]
